FAERS Safety Report 8598321-4 (Version None)
Quarter: 2012Q3

REPORT INFORMATION
  Report Type: 
  Country: None (occurrence: None)
  Receive Date: 20120816
  Receipt Date: 20120806
  Transmission Date: 20120928
  Serious: Yes (Hospitalization, Other)
  Sender: FDA-Public Use
  Company Number: BR-JNJFOC-20120807280

PATIENT
  Sex: Male
  Weight: 73 kg

DRUGS (6)
  1. INDAPAMIDE [Concomitant]
     Indication: HYPERTENSION
     Route: 048
     Dates: start: 20120706
  2. CLONAZEPAM [Concomitant]
     Indication: DEPRESSION
     Route: 048
     Dates: start: 20000101
  3. ATENOLOL [Concomitant]
     Route: 048
     Dates: start: 20000101
  4. CITALOPRAM [Concomitant]
     Indication: DEPRESSION
     Route: 048
     Dates: start: 20000101
  5. ATENOLOL [Concomitant]
     Indication: CEREBROVASCULAR ACCIDENT
     Route: 048
     Dates: start: 20000101
  6. XARELTO [Suspect]
     Indication: THROMBOSIS PROPHYLAXIS
     Route: 048
     Dates: start: 20120501, end: 20120711

REACTIONS (6)
  - OEDEMA PERIPHERAL [None]
  - PYREXIA [None]
  - BLOOD URINE PRESENT [None]
  - SKIN HYPERTROPHY [None]
  - PRURITUS [None]
  - CHOLANGITIS ACUTE [None]
